FAERS Safety Report 5910471-7 (Version None)
Quarter: 2008Q4

REPORT INFORMATION
  Report Type: 
  Country: None (occurrence: None)
  Receive Date: 20081007
  Receipt Date: 20081002
  Transmission Date: 20090506
  Serious: Yes (Hospitalization)
  Sender: FDA-Public Use
  Company Number: SE-ABBOTT-08P-150-0472855-00

PATIENT
  Age: 63 Year
  Sex: Male
  Weight: 56.7 kg

DRUGS (1)
  1. ZEMPLAR [Suspect]
     Indication: HYPERPARATHYROIDISM
     Dosage: 5 MCG/ML, 2 ML PER WEEK
     Route: 050
     Dates: start: 20080214

REACTIONS (2)
  - ANGINA PECTORIS [None]
  - DYSPNOEA [None]
